FAERS Safety Report 6253579-1 (Version None)
Quarter: 2009Q2

REPORT INFORMATION
  Report Type: 
  Country: None (occurrence: None)
  Receive Date: 20090630
  Receipt Date: 20090618
  Transmission Date: 20091009
  Serious: Yes (Hospitalization)
  Sender: FDA-Public Use
  Company Number: 2009007399

PATIENT
  Age: 50 Year
  Sex: Female
  Weight: 61.2356 kg

DRUGS (1)
  1. PROVIGIL [Suspect]
     Dosage: (100 MG),ORAL
     Route: 048
     Dates: start: 20090406, end: 20090417

REACTIONS (1)
  - DRUG HYPERSENSITIVITY [None]
